FAERS Safety Report 10217081 (Version 1)
Quarter: 2014Q2

REPORT INFORMATION
  Report Type: Spontaneous
  Country: NL (occurrence: NL)
  Receive Date: 20140604
  Receipt Date: 20140604
  Transmission Date: 20141212
  Serious: Yes (Other)
  Sender: FDA-Public Use
  Company Number: NL-ASTRAZENECA-2014SE36122

PATIENT
  Age: 54 Year
  Sex: Female

DRUGS (4)
  1. LIDOCAINE [Suspect]
     Dosage: 5 MG/ML, 1 DF
     Route: 042
     Dates: start: 20140425, end: 20140425
  2. PROPOFOL [Suspect]
     Dosage: 10 MG/ML, 1 DF
     Route: 042
     Dates: start: 20140425, end: 20140425
  3. TRAMADOL [Concomitant]
     Route: 048
  4. PARACETAMOL [Concomitant]
     Route: 048

REACTIONS (2)
  - Vena cava thrombosis [Unknown]
  - Thrombophlebitis [Unknown]
